FAERS Safety Report 8411685-7 (Version None)
Quarter: 2012Q2

REPORT INFORMATION
  Report Type: 
  Country: None (occurrence: None)
  Receive Date: 20120605
  Receipt Date: 20120531
  Transmission Date: 20120825
  Serious: Yes (Death, Life-Threatening)
  Sender: FDA-Public Use
  Company Number: NL-PFIZER INC-2012125960

PATIENT
  Age: 45 Year
  Sex: Female
  Weight: 66 kg

DRUGS (12)
  1. PROVERA [Concomitant]
     Indication: HYPOGONADISM
  2. ESTROFEM [Concomitant]
     Indication: BLOOD FOLLICLE STIMULATING HORMONE DECREASED
  3. ESTROFEM [Concomitant]
     Indication: HYPOGONADISM
  4. LEVOTHYROXINE [Concomitant]
     Indication: BLOOD THYROID STIMULATING HORMONE DECREASED
  5. ASCAL [Concomitant]
     Indication: PROPHYLAXIS
     Dosage: UNK
     Dates: start: 20000615
  6. PROVERA [Concomitant]
     Indication: BLOOD FOLLICLE STIMULATING HORMONE DECREASED
  7. HYDROCORTISONE [Concomitant]
     Indication: BLOOD CORTICOTROPHIN DECREASED
     Dosage: UNK
     Dates: start: 19820815
  8. PROVERA [Concomitant]
     Indication: BLOOD LUTEINISING HORMONE DECREASED
     Dosage: UNK
     Route: 048
     Dates: start: 19841015
  9. ESTROFEM [Concomitant]
     Indication: BLOOD LUTEINISING HORMONE DECREASED
     Dosage: UNK
     Dates: start: 19841015
  10. SOMATROPIN RDNA [Suspect]
     Indication: HYPOPITUITARISM
     Dosage: 0.3 MG, 1X/DAY, 7 INJECTIONS PER WEEK
     Dates: start: 19960328
  11. DICLOFENAC [Concomitant]
     Indication: ARTHRALGIA
     Dosage: UNK
     Dates: start: 19961028
  12. LEVOTHYROXINE [Concomitant]
     Indication: PRIMARY HYPOTHYROIDISM
     Dosage: UNK
     Dates: start: 19820815

REACTIONS (1)
  - DEATH [None]
